FAERS Safety Report 6917113-2 (Version None)
Quarter: 2010Q3

REPORT INFORMATION
  Report Type: 
  Country: None (occurrence: None)
  Receive Date: 20100810
  Receipt Date: 20100803
  Transmission Date: 20110219
  Serious: Yes (Hospitalization)
  Sender: FDA-Public Use
  Company Number: B0668782A

PATIENT
  Age: 82 Year
  Sex: Female

DRUGS (2)
  1. VALTREX [Suspect]
     Indication: HERPES ZOSTER
     Route: 048
  2. ZOVIRAX [Suspect]
     Indication: HERPES ZOSTER
     Route: 042

REACTIONS (1)
  - NERVOUS SYSTEM DISORDER [None]
